FAERS Safety Report 19872740 (Version 15)
Quarter: 2022Q1

REPORT INFORMATION
  Report Type: Report from Study
  Country: US (occurrence: None)
  Receive Date: 20210922
  Receipt Date: 20220207
  Transmission Date: 20220424
  Serious: Yes (Hospitalization)
  Sender: FDA-Public Use
  Company Number: US-EISAI MEDICAL RESEARCH-EC-2021-099975

PATIENT
  Age: 63 Year
  Sex: Female
  Weight: 100.33 kg

DRUGS (16)
  1. LENVATINIB [Suspect]
     Active Substance: LENVATINIB
     Indication: Renal cell carcinoma
     Route: 048
     Dates: start: 20210702, end: 20210908
  2. LENVATINIB [Suspect]
     Active Substance: LENVATINIB
     Route: 048
     Dates: start: 20210924, end: 20211011
  3. QUAVONLIMAB [Suspect]
     Active Substance: QUAVONLIMAB
     Indication: Renal cell carcinoma
     Dosage: QUAVONLIMAB 25MG + PEMBROLIZUMAB 400MG
     Route: 041
     Dates: start: 20210702, end: 20210702
  4. QUAVONLIMAB [Suspect]
     Active Substance: QUAVONLIMAB
     Dosage: QUAVONLIMAB 25MG + PEMBROLIZUMAB 400MG
     Route: 041
     Dates: start: 20210813, end: 20210813
  5. QUAVONLIMAB [Suspect]
     Active Substance: QUAVONLIMAB
     Dosage: QUAVONLIMAB 25MG + PEMBROLIZUMAB 400MG
     Route: 041
     Dates: start: 20210924, end: 20210924
  6. IBUPROFEN [Concomitant]
     Active Substance: IBUPROFEN
     Dates: start: 20210604
  7. TRAMADOL HYDROCHLORIDE [Concomitant]
     Active Substance: TRAMADOL HYDROCHLORIDE
     Dates: start: 20210709, end: 202201
  8. MILK OF MAGNESIA [Concomitant]
     Active Substance: MAGNESIUM HYDROXIDE
     Dates: start: 20210714, end: 20210901
  9. ALUMINIUM HYDROXIDE;DIPHENHYDRAMINE;LIDOCAINE;MAGNESIUM HYDROXIDE [Concomitant]
     Dates: start: 20210806
  10. ZOMETA [Concomitant]
     Active Substance: ZOLEDRONIC ACID
     Dates: start: 20210813
  11. AMLODIPINE [Concomitant]
     Active Substance: AMLODIPINE BESYLATE
     Dates: start: 20210813
  12. REGLAN [Concomitant]
     Active Substance: METOCLOPRAMIDE HYDROCHLORIDE
     Dates: start: 20210904, end: 20210911
  13. LOPERAMIDE [Concomitant]
     Active Substance: LOPERAMIDE
     Dates: start: 20210902, end: 20211013
  14. PEMBROLIZUMAB [Suspect]
     Active Substance: PEMBROLIZUMAB
  15. PEMBROLIZUMAB [Suspect]
     Active Substance: PEMBROLIZUMAB
  16. PEMBROLIZUMAB [Suspect]
     Active Substance: PEMBROLIZUMAB

REACTIONS (1)
  - Hyperbilirubinaemia [Recovered/Resolved]

NARRATIVE: CASE EVENT DATE: 20210910
